FAERS Safety Report 15204754 (Version 1)
Quarter: 2018Q3

REPORT INFORMATION
  Report Type: Spontaneous
  Country: US (occurrence: US)
  Receive Date: 20180726
  Receipt Date: 20180726
  Transmission Date: 20181010
  Serious: No
  Sender: FDA-Public Use
  Company Number: US-009507513-1203USA02313

PATIENT
  Age: 50 Year
  Sex: Female

DRUGS (4)
  1. MAXALT?MLT [Suspect]
     Active Substance: RIZATRIPTAN BENZOATE
     Indication: MIGRAINE
     Dosage: 10 MG, PRN
     Route: 048
     Dates: start: 1998
  2. ACETAMINOPHEN (+) ASPIRIN (+) CAFFEINE [Concomitant]
  3. SUDAFED [Concomitant]
     Active Substance: PSEUDOEPHEDRINE HYDROCHLORIDE
  4. NAPROXEN. [Concomitant]
     Active Substance: NAPROXEN

REACTIONS (19)
  - Muscular weakness [Recovering/Resolving]
  - Undersensing [Unknown]
  - Dizziness [Not Recovered/Not Resolved]
  - Adverse event [Recovering/Resolving]
  - Nausea [Recovering/Resolving]
  - Musculoskeletal stiffness [Unknown]
  - Hypertension [Not Recovered/Not Resolved]
  - Blood triglycerides increased [Not Recovered/Not Resolved]
  - Undersensing [Recovering/Resolving]
  - Hypoaesthesia [Unknown]
  - Gait disturbance [Recovering/Resolving]
  - Hypoaesthesia [Recovering/Resolving]
  - Musculoskeletal stiffness [Recovering/Resolving]
  - Gait disturbance [Unknown]
  - Adverse event [Unknown]
  - Nausea [Unknown]
  - Muscular weakness [Unknown]
  - Blood cholesterol increased [Not Recovered/Not Resolved]
  - Hypotension [Not Recovered/Not Resolved]

NARRATIVE: CASE EVENT DATE: 1998
